FAERS Safety Report 6805637-8 (Version None)
Quarter: 2010Q2

REPORT INFORMATION
  Report Type: 
  Country: None (occurrence: None)
  Receive Date: 20100628
  Receipt Date: 20080126
  Transmission Date: 20101027
  Serious: No
  Sender: FDA-Public Use
  Company Number: US-PFIZER INC-2007076632

PATIENT
  Sex: Male
  Weight: 31 kg

DRUGS (1)
  1. GENOTROPIN [Suspect]
     Indication: BODY HEIGHT BELOW NORMAL
     Dosage: DAILY
     Route: 030
     Dates: start: 20020101

REACTIONS (4)
  - GROIN PAIN [None]
  - LIMB INJURY [None]
  - MUSCLE STRAIN [None]
  - WEIGHT FLUCTUATION [None]
